FAERS Safety Report 22137779 (Version 1)
Quarter: 2023Q1

REPORT INFORMATION
  Report Type: Spontaneous
  Country: GB (occurrence: GB)
  Receive Date: 20230325
  Receipt Date: 20230325
  Transmission Date: 20230417
  Serious: Yes (Hospitalization)
  Sender: FDA-Public Use
  Company Number: None

PATIENT
  Age: 78 Year
  Sex: Male

DRUGS (6)
  1. SERTRALINE [Suspect]
     Active Substance: SERTRALINE HYDROCHLORIDE
     Indication: Product used for unknown indication
  2. ATORVASTATIN [Concomitant]
     Active Substance: ATORVASTATIN
  3. MEMANTINE [Concomitant]
     Active Substance: MEMANTINE
  4. NOVORAPID [Concomitant]
     Active Substance: INSULIN ASPART
     Dosage: 100UNITS/ML 6 MANE 8 LUNCH 12 TEA
  5. PERINDOPRIL [Concomitant]
     Active Substance: PERINDOPRIL
  6. INSULIN GLARGINE [Concomitant]
     Active Substance: INSULIN GLARGINE
     Dosage: 300UNITS/ML AT NIGHT

REACTIONS (2)
  - Decreased appetite [Unknown]
  - Abnormal behaviour [Unknown]
